FAERS Safety Report 5492594-2 (Version None)
Quarter: 2007Q4

REPORT INFORMATION
  Report Type: 
  Country: None (occurrence: None)
  Receive Date: 20071022
  Receipt Date: 20070817
  Transmission Date: 20080405
  Serious: Yes (Life-Threatening, Hospitalization)
  Sender: FDA-Public Use
  Company Number: DE-PFIZER INC-2007051921

PATIENT
  Sex: Male
  Weight: 92 kg

DRUGS (10)
  1. SUTENT [Suspect]
     Indication: RENAL CELL CARCINOMA STAGE UNSPECIFIED
     Dates: start: 20070501, end: 20070509
  2. TRENANTONE [Concomitant]
     Route: 058
  3. TROMCARDIN FORTE [Concomitant]
  4. REMID [Concomitant]
  5. SIMVASTATIN [Concomitant]
  6. FUROSEMIDE [Concomitant]
  7. FORADIL [Concomitant]
  8. METFORMIN HCL [Concomitant]
  9. POTASSIUM CHLORIDE [Concomitant]
  10. XIPAMIDE [Concomitant]

REACTIONS (5)
  - BLOOD COUNT ABNORMAL [None]
  - INFECTION [None]
  - PYREXIA [None]
  - SKIN EXFOLIATION [None]
  - STOMATITIS [None]
